FAERS Safety Report 8414925-3 (Version None)
Quarter: 2012Q2

REPORT INFORMATION
  Report Type: 
  Country: None (occurrence: None)
  Receive Date: 20120601
  Receipt Date: 20120601
  Transmission Date: 20120825
  Serious: Yes (Hospitalization)
  Sender: FDA-Public Use
  Company Number: None

PATIENT
  Age: 66 Year
  Sex: Male
  Weight: 101.6 kg

DRUGS (2)
  1. TEMSIROLIMUS [Suspect]
     Indication: MANTLE CELL LYMPHOMA
     Dosage: 25MG WEEKLY IV DRIP
     Route: 042
     Dates: start: 20120404, end: 20120516
  2. VELCADE [Suspect]
     Indication: MANTLE CELL LYMPHOMA
     Dosage: 1.6MG/M2 WEEKLY IV DRIP
     Route: 042
     Dates: start: 20120404, end: 20120516

REACTIONS (5)
  - URINARY TRACT INFECTION [None]
  - DYSPNOEA [None]
  - RENAL FAILURE ACUTE [None]
  - ATRIAL FIBRILLATION [None]
  - FATIGUE [None]
